FAERS Safety Report 6676195-6 (Version None)
Quarter: 2010Q2

REPORT INFORMATION
  Report Type: 
  Country: None (occurrence: None)
  Receive Date: 20100412
  Receipt Date: 20100401
  Transmission Date: 20101027
  Serious: Yes (Hospitalization)
  Sender: FDA-Public Use
  Company Number: JP-JNJFOC-20081001484

PATIENT
  Sex: Male
  Weight: 63 kg

DRUGS (16)
  1. REMICADE [Suspect]
     Indication: RHEUMATOID ARTHRITIS
     Route: 042
  2. REMICADE [Suspect]
     Dosage: 19 INFUSIONS ON UNSPECIFIED DATES
     Route: 042
  3. REMICADE [Suspect]
     Route: 042
  4. RHEUMATREX [Suspect]
     Indication: RHEUMATOID ARTHRITIS
     Route: 048
  5. MOBIC [Concomitant]
     Indication: RHEUMATOID ARTHRITIS
     Route: 048
  6. FOLIC ACID [Concomitant]
     Indication: FOLATE DEFICIENCY
     Route: 048
  7. SACCORTIN [Concomitant]
     Indication: RHEUMATOID ARTHRITIS
     Route: 048
  8. ALLOZYM [Concomitant]
     Indication: GOUT
     Route: 048
  9. MUCOSTA [Concomitant]
     Indication: GASTRITIS
     Route: 048
  10. PREDNISOLONE [Concomitant]
     Indication: RHEUMATOID ARTHRITIS
     Route: 048
  11. ASPIRIN [Concomitant]
     Indication: CEREBRAL INFARCTION
     Route: 048
  12. LASIX [Concomitant]
     Indication: OEDEMA DUE TO RENAL DISEASE
     Route: 048
  13. NORVASC [Concomitant]
     Indication: HYPERTENSION
     Route: 048
  14. GLIMICRON [Concomitant]
     Indication: DIABETES MELLITUS
     Route: 048
  15. LANSORAL [Concomitant]
     Indication: REFLUX OESOPHAGITIS
     Route: 048
  16. HYPADIL [Concomitant]
     Indication: HYPERTENSION
     Route: 048

REACTIONS (3)
  - HEPATIC FUNCTION ABNORMAL [None]
  - RENAL IMPAIRMENT [None]
  - SALMONELLA SEPSIS [None]
